FAERS Safety Report 6688883-6 (Version None)
Quarter: 2010Q2

REPORT INFORMATION
  Report Type: 
  Country: None (occurrence: None)
  Receive Date: 20100420
  Receipt Date: 20100409
  Transmission Date: 20101027
  Serious: Yes (Life-Threatening)
  Sender: FDA-Public Use
  Company Number: JP-SANOFI-AVENTIS-2010SA020593

PATIENT
  Sex: Male

DRUGS (3)
  1. ELPLAT [Suspect]
     Route: 041
     Dates: start: 20100205, end: 20100205
  2. ELPLAT [Suspect]
     Route: 041
     Dates: start: 20100402, end: 20100402
  3. XELODA [Concomitant]
     Route: 048

REACTIONS (1)
  - PRINZMETAL ANGINA [None]
